FAERS Safety Report 9611026 (Version 2)
Quarter: 2013Q4

REPORT INFORMATION
  Report Type: Spontaneous
  Country: JP (occurrence: JP)
  Receive Date: 20131009
  Receipt Date: 20131016
  Transmission Date: 20140711
  Serious: Yes (Hospitalization)
  Sender: FDA-Public Use
  Company Number: JP-GLAXOSMITHKLINE-B0928070A

PATIENT
  Age: 6 Year
  Sex: 0

DRUGS (1)
  1. SERETIDE [Suspect]
     Indication: ASTHMA
     Route: 055

REACTIONS (2)
  - Condition aggravated [Unknown]
  - Drug effect incomplete [Unknown]
